FAERS Safety Report 8307426-4 (Version None)
Quarter: 2012Q1

REPORT INFORMATION
  Report Type: 
  Country: None (occurrence: None)
  Receive Date: 20120327
  Receipt Date: 20090818
  Transmission Date: 20120608
  Serious: Yes (Hospitalization)
  Sender: FDA-Public Use
  Company Number: PHEH2009US07391

PATIENT
  Age: 69 Year
  Sex: Female

DRUGS (2)
  1. GLEEVEC [Suspect]
     Dosage: 200 MG, QD ; 300 MG QD, ORAL
     Dates: start: 20090301, end: 20090301
  2. GLEEVEC [Suspect]
     Dosage: 200 MG, QD ; 300 MG QD, ORAL
     Dates: start: 20090301, end: 20090301

REACTIONS (6)
  - FACIAL PAIN [None]
  - SKIN EXFOLIATION [None]
  - FACE OEDEMA [None]
  - RENAL FAILURE [None]
  - PAIN [None]
  - OEDEMA PERIPHERAL [None]
